FAERS Safety Report 16064160 (Version 4)
Quarter: 2024Q2

REPORT INFORMATION
  Report Type: Report from Study
  Country: EG (occurrence: EG)
  Receive Date: 20190312
  Receipt Date: 20240423
  Transmission Date: 20240716
  Serious: Yes (Death, Hospitalization)
  Sender: FDA-Public Use
  Company Number: EG-PFIZER INC-2019041498

PATIENT
  Age: 34 Year
  Sex: Female
  Weight: 51 kg

DRUGS (3)
  1. SUTENT [Suspect]
     Active Substance: SUNITINIB MALATE
     Indication: Metastatic renal cell carcinoma
     Dosage: 50 MG, CYCLIC: DAILY 2 WEEKS ON AND ONE WEEK OFF
     Route: 048
     Dates: start: 20190102, end: 20190305
  2. BISOPROLOL [Concomitant]
     Active Substance: BISOPROLOL\BISOPROLOL FUMARATE
     Indication: Hypertension
     Dosage: 10 MG, UNK
     Route: 048
     Dates: start: 2017, end: 20190118
  3. PERINDOPRIL [Concomitant]
     Active Substance: PERINDOPRIL
     Indication: Hypertension
     Dosage: 4 MG, UNK
     Route: 048
     Dates: start: 20190118

REACTIONS (6)
  - Neoplasm progression [Fatal]
  - Hemiparesis [Unknown]
  - Dehydration [Unknown]
  - Hyponatraemia [Recovered/Resolved]
  - Vomiting [Recovered/Resolved]
  - Hyponatraemia [Recovering/Resolving]

NARRATIVE: CASE EVENT DATE: 20190115
